FAERS Safety Report 7600348-3 (Version None)
Quarter: 2011Q3

REPORT INFORMATION
  Report Type: 
  Country: None (occurrence: None)
  Receive Date: 20110711
  Receipt Date: 20110701
  Transmission Date: 20111222
  Serious: Yes (Other)
  Sender: FDA-Public Use
  Company Number: US-SANOFI-AVENTIS-2011SA043120

PATIENT
  Sex: Female

DRUGS (1)
  1. FEXOFENADINE HCL [Suspect]
     Dosage: DOSE:180 UNIT(S)
     Route: 048

REACTIONS (2)
  - BRAIN NEOPLASM [None]
  - VISUAL IMPAIRMENT [None]
